FAERS Safety Report 23337676 (Version 1)
Quarter: 2023Q4

REPORT INFORMATION
  Report Type: Spontaneous
  Country: US (occurrence: US)
  Receive Date: 20231226
  Receipt Date: 20231226
  Transmission Date: 20240110
  Serious: No
  Sender: FDA-Public Use
  Company Number: US-OPELLA-2023OHG019679

PATIENT
  Age: 4 Year
  Sex: Male

DRUGS (1)
  1. DULCOLAX SOFT CHEWS WATERMELON [Suspect]
     Active Substance: MAGNESIUM HYDROXIDE
     Indication: Product used for unknown indication

REACTIONS (2)
  - Wrong dose [Unknown]
  - No adverse event [Unknown]
